FAERS Safety Report 20895729 (Version 1)
Quarter: 2022Q2

REPORT INFORMATION
  Report Type: Spontaneous
  Country: US (occurrence: None)
  Receive Date: 20220529
  Receipt Date: 20220529
  Transmission Date: 20220721
  Serious: Yes (Disabling)
  Sender: FDA-Public Use
  Company Number: None

PATIENT
  Age: 12 Month
  Sex: Male
  Weight: 18.9 kg

DRUGS (1)
  1. MAKENA [Suspect]
     Active Substance: HYDROXYPROGESTERONE CAPROATE
     Indication: Premature baby
     Dates: start: 20161001, end: 20170525

REACTIONS (5)
  - Maternal drugs affecting foetus [None]
  - Speech disorder [None]
  - Attention deficit hyperactivity disorder [None]
  - Attention deficit hyperactivity disorder [None]
  - Maternal exposure timing unspecified [None]

NARRATIVE: CASE EVENT DATE: 20180525
